FAERS Safety Report 24104484 (Version 1)
Quarter: 2024Q3

REPORT INFORMATION
  Report Type: Spontaneous
  Country: HR (occurrence: HR)
  Receive Date: 20240717
  Receipt Date: 20240717
  Transmission Date: 20241017
  Serious: Yes (Other)
  Sender: BAUSCH AND LOMB
  Company Number: None

PATIENT
  Age: 52 Year
  Sex: Female
  Weight: 63 kg

DRUGS (2)
  1. PLENVU [Suspect]
     Active Substance: ASCORBIC ACID\POLYETHYLENE GLYCOL 3350\POTASSIUM CHLORIDE\SODIUM ASCORBATE\SODIUM CHLORIDE\SODIUM SU
     Indication: Bowel preparation
     Dosage: 1 DF, QD (1DF = 40GMACROGOL 3350+NACL+1.2GPOTASSIUM CL+48.11GSODIUMASCORBATE+7.54 G ASCORBIC A)
     Route: 048
     Dates: start: 20240612, end: 20240612
  2. PLENVU [Suspect]
     Active Substance: ASCORBIC ACID\POLYETHYLENE GLYCOL 3350\POTASSIUM CHLORIDE\SODIUM ASCORBATE\SODIUM CHLORIDE\SODIUM SU
     Dosage: 1 DOSAGE FORM, QD (1DF = 100 G MACROGOL 3350 + 9 G ANHYDROUS SODIUM SULPHATE + 2 G NACL + 1 G KCL)
     Route: 048
     Dates: start: 20240612, end: 20240612

REACTIONS (3)
  - Haematemesis [Recovering/Resolving]
  - Nausea [Recovering/Resolving]
  - Abdominal pain upper [Recovering/Resolving]

NARRATIVE: CASE EVENT DATE: 20240612
